FAERS Safety Report 15145599 (Version 1)
Quarter: 2018Q3

REPORT INFORMATION
  Report Type: Spontaneous
  Country: US (occurrence: US)
  Receive Date: 20180713
  Receipt Date: 20180713
  Transmission Date: 20181010
  Serious: No
  Sender: FDA-Public Use
  Company Number: US-SHIRE-US201825609

PATIENT
  Sex: Female

DRUGS (1)
  1. GATTEX [Suspect]
     Active Substance: TEDUGLUTIDE\WATER
     Indication: PRODUCT USED FOR UNKNOWN INDICATION
     Dosage: 0.33 UNK, UNK
     Route: 065
     Dates: start: 20180518

REACTIONS (2)
  - Inappropriate schedule of drug administration [Recovered/Resolved]
  - Bowel movement irregularity [Recovering/Resolving]
